FAERS Safety Report 7263417-6 (Version None)
Quarter: 2011Q1

REPORT INFORMATION
  Report Type: 
  Country: None (occurrence: None)
  Receive Date: 20110130
  Receipt Date: 20101104
  Transmission Date: 20110831
  Serious: No
  Sender: FDA-Public Use
  Company Number: US-ABBOTT-10P-163-0683810-00

PATIENT
  Sex: Female
  Weight: 61.744 kg

DRUGS (9)
  1. FISH OIL [Concomitant]
     Indication: VITAMIN SUPPLEMENTATION
  2. FOLIC ACID [Concomitant]
     Indication: VITAMIN SUPPLEMENTATION
  3. HUMIRA [Suspect]
     Indication: COLITIS ULCERATIVE
     Dates: start: 20101021, end: 20101021
  4. HUMIRA [Suspect]
     Dates: start: 20101105, end: 20101105
  5. METHOTREXATE [Concomitant]
     Indication: COLITIS ULCERATIVE
  6. CANASA [Concomitant]
     Indication: COLITIS ULCERATIVE
  7. CALCIUM [Concomitant]
     Indication: MINERAL SUPPLEMENTATION
  8. COLAZAL [Concomitant]
     Indication: COLITIS ULCERATIVE
  9. IRON [Concomitant]
     Indication: MINERAL SUPPLEMENTATION

REACTIONS (2)
  - DEVICE MALFUNCTION [None]
  - INJECTION SITE PAIN [None]
